FAERS Safety Report 15056784 (Version 1)
Quarter: 2018Q2

REPORT INFORMATION
  Report Type: Spontaneous
  Country: US (occurrence: US)
  Receive Date: 20180623
  Receipt Date: 20180623
  Transmission Date: 20180711
  Serious: No
  Sender: FDA-Public Use
  Company Number: US-IPSEN BIOPHARMACEUTICALS, INC.-2018-05865

PATIENT
  Age: 51 Year
  Sex: Male

DRUGS (1)
  1. DYSPORT [Suspect]
     Active Substance: ABOBOTULINUMTOXINA
     Indication: SKIN WRINKLING
     Dosage: 10 IU
     Route: 065
     Dates: start: 20180411, end: 20180411

REACTIONS (3)
  - Injection site pain [Recovered/Resolved]
  - Intentional product misuse [Unknown]
  - Product storage error [Unknown]

NARRATIVE: CASE EVENT DATE: 20180411
